FAERS Safety Report 6828029-4 (Version None)
Quarter: 2010Q3

REPORT INFORMATION
  Report Type: 
  Country: None (occurrence: None)
  Receive Date: 20100709
  Receipt Date: 20100705
  Transmission Date: 20110219
  Serious: Yes (Death)
  Sender: FDA-Public Use
  Company Number: A0869362A

PATIENT
  Sex: Male
  Weight: 42 kg

DRUGS (2)
  1. SERETIDE [Suspect]
     Dosage: 1PUFF TWICE PER DAY
     Dates: start: 20070101, end: 20100222
  2. UNSPECIFIED MEDICATIONS [Concomitant]

REACTIONS (1)
  - SEPSIS [None]
